FAERS Safety Report 4810413-1 (Version None)
Quarter: 2005Q4

REPORT INFORMATION
  Report Type: 
  Country: None (occurrence: None)
  Receive Date: 20051024
  Receipt Date: 20051014
  Transmission Date: 20060501
  Serious: Yes (Hospitalization, Other)
  Sender: FDA-Public Use
  Company Number: KII-2005-0019091

PATIENT
  Age: 12 Year
  Sex: Male

DRUGS (3)
  1. OXYCODONE HCL [Suspect]
     Dosage: SEE TEXT, ORAL
     Route: 048
  2. ACETAMINOPHEN AND OXYCODONE HCL [Suspect]
     Dosage: SEE TEXT, ORAL
     Route: 048
  3. BENZODIAZEPINE DERIVATIVES () [Suspect]

REACTIONS (10)
  - ASPIRATION [None]
  - ATELECTASIS [None]
  - BLOOD PH DECREASED [None]
  - BODY TEMPERATURE DECREASED [None]
  - MULTIPLE DRUG OVERDOSE [None]
  - RESPIRATORY DEPRESSION [None]
  - RESPIRATORY RATE DECREASED [None]
  - RESPIRATORY RATE INCREASED [None]
  - SINUS TACHYCARDIA [None]
  - SOMNOLENCE [None]
